FAERS Safety Report 7524704-7 (Version None)
Quarter: 2011Q2

REPORT INFORMATION
  Report Type: 
  Country: None (occurrence: None)
  Receive Date: 20110602
  Receipt Date: 20110602
  Transmission Date: 20111010
  Serious: Yes (Other)
  Sender: FDA-Public Use
  Company Number: None

PATIENT
  Age: 79 Year
  Sex: Female
  Weight: 52.1637 kg

DRUGS (1)
  1. ZETIA [Suspect]
     Indication: BLOOD CHOLESTEROL INCREASED
     Dates: start: 20090101, end: 20090104

REACTIONS (6)
  - MOVEMENT DISORDER [None]
  - ARTHRITIS [None]
  - PRODUCT QUALITY ISSUE [None]
  - MUSCULOSKELETAL STIFFNESS [None]
  - SYSTEMIC LUPUS ERYTHEMATOSUS [None]
  - PAIN [None]
